FAERS Safety Report 8911255 (Version 2)
Quarter: 2013Q2

REPORT INFORMATION
  Report Type: Spontaneous
  Country: US (occurrence: US)
  Receive Date: 20121115
  Receipt Date: 20130529
  Transmission Date: 20140414
  Serious: No
  Sender: FDA-Public Use
  Company Number: US-009507513-1211USA002513

PATIENT
  Sex: Female
  Weight: 106.5 kg

DRUGS (7)
  1. NUVARING [Suspect]
     Indication: CONTRACEPTION
     Dosage: 1 DF, UNK
     Route: 067
     Dates: start: 2005
  2. DIOVAN [Concomitant]
  3. METOPROLOL [Concomitant]
  4. VITAMIN D (UNSPECIFIED) [Concomitant]
     Dosage: UNK UNK, QW
  5. METHOTREXATE [Concomitant]
  6. PLAQUENIL [Concomitant]
  7. VITAMIN E [Concomitant]

REACTIONS (5)
  - Menorrhagia [Unknown]
  - Dysmenorrhoea [Unknown]
  - Menorrhagia [Unknown]
  - Inappropriate schedule of drug administration [Recovered/Resolved]
  - Vulvovaginal candidiasis [Unknown]
